FAERS Safety Report 9941738 (Version 1)
Quarter: 2014Q1

REPORT INFORMATION
  Report Type: Report from Study
  Country: US (occurrence: US)
  Receive Date: 20140303
  Receipt Date: 20140303
  Transmission Date: 20141002
  Serious: No
  Sender: FDA-Public Use
  Company Number: US-ABBVIE-13P-163-1042849-00

PATIENT
  Sex: Male
  Weight: 79.45 kg

DRUGS (5)
  1. HUMIRA [Suspect]
     Indication: SPONDYLOARTHROPATHY
     Dates: start: 2008
  2. METHOTREXATE [Concomitant]
     Indication: SPONDYLOARTHROPATHY
  3. MULTIVITAMIN [Concomitant]
     Indication: PRODUCT USED FOR UNKNOWN INDICATION
  4. CALCIUM [Concomitant]
     Indication: ARTHROPATHY
  5. FOLIC ACID [Concomitant]
     Indication: BLOOD CALCIUM

REACTIONS (1)
  - Off label use [Not Recovered/Not Resolved]
